FAERS Safety Report 11047259 (Version 1)
Quarter: 2015Q2

REPORT INFORMATION
  Report Type: Spontaneous
  Country: AU (occurrence: None)
  Receive Date: 20150416
  Receipt Date: 20150416
  Transmission Date: 20150821
  Serious: Yes (Other)
  Sender: FDA-Public Use
  Company Number: 2015AU003276

PATIENT
  Age: 69 Year
  Sex: Male

DRUGS (1)
  1. ELIGARD [Suspect]
     Active Substance: LEUPROLIDE ACETATE
     Dosage: 6  MONTHLY

REACTIONS (4)
  - Localised oedema [None]
  - Oedema peripheral [None]
  - Metastases to bone [None]
  - Nausea [None]
